FAERS Safety Report 21281196 (Version 1)
Quarter: 2022Q3

REPORT INFORMATION
  Report Type: Spontaneous
  Country: GB (occurrence: GB)
  Receive Date: 20220901
  Receipt Date: 20220901
  Transmission Date: 20221027
  Serious: Yes (Disabling, Other)
  Sender: FDA-Public Use
  Company Number: None

PATIENT
  Age: 27 Year
  Sex: Female
  Weight: 92 kg

DRUGS (1)
  1. SPIRONOLACTONE [Suspect]
     Active Substance: SPIRONOLACTONE
     Indication: Polycystic ovaries
     Dosage: 100 MG, 1X/DAY
     Dates: start: 20220801, end: 20220809

REACTIONS (5)
  - Anorgasmia [Not Recovered/Not Resolved]
  - Vulvovaginal dryness [Unknown]
  - Hypoaesthesia [Unknown]
  - Female sexual dysfunction [Unknown]
  - Off label use [Unknown]

NARRATIVE: CASE EVENT DATE: 20220806
